FAERS Safety Report 8967645 (Version 2)
Quarter: 2013Q1

REPORT INFORMATION
  Report Type: Spontaneous
  Country: PL (occurrence: None)
  Receive Date: 20121204
  Receipt Date: 20121221
  Transmission Date: 20140127
  Serious: Yes (Hospitalization, Other)
  Sender: FDA-Public Use
  Company Number: VAL_01024_2012

PATIENT
  Age: 25 Year
  Sex: Female

DRUGS (2)
  1. BROMOCRIPTINE [Suspect]
     Indication: PITUITARY HAEMORRHAGE
     Dosage: GRADUALLY REDUCE DOSE UNTIL ITS COMPLETE DISCONTINUATION
     Dates: end: 2008
  2. BROMOCRIPTINE [Suspect]
     Indication: PROLACTINOMA
     Dosage: GRADUALLY REDUCE DOSE UNTIL ITS COMPLETE DISCONTINUATION
     Dates: end: 2008

REACTIONS (13)
  - Neurological decompensation [None]
  - Visual field defect [None]
  - Blood prolactin increased [None]
  - Maternal exposure during pregnancy [None]
  - Caesarean section [None]
  - Haematoma [None]
  - General physical health deterioration [None]
  - Headache [None]
  - Dizziness [None]
  - Visual impairment [None]
  - Visual acuity reduced [None]
  - Adenoma benign [None]
  - Pituitary haemorrhage [None]
